FAERS Safety Report 21050944 (Version 1)
Quarter: 2022Q3

REPORT INFORMATION
  Report Type: Spontaneous
  Country: US (occurrence: US)
  Receive Date: 20220707
  Receipt Date: 20220707
  Transmission Date: 20221027
  Serious: No
  Sender: FDA-Public Use
  Company Number: US-ELI_LILLY_AND_COMPANY-US202206006051

PATIENT
  Sex: Female

DRUGS (1)
  1. TRULICITY [Suspect]
     Active Substance: DULAGLUTIDE
     Indication: Type 2 diabetes mellitus
     Dosage: 3 MG, UNKNOWN
     Route: 058

REACTIONS (9)
  - Pain [Not Recovered/Not Resolved]
  - Back disorder [Not Recovered/Not Resolved]
  - Blood glucose abnormal [Unknown]
  - Musculoskeletal discomfort [Not Recovered/Not Resolved]
  - Overweight [Not Recovered/Not Resolved]
  - Mobility decreased [Unknown]
  - Intervertebral disc disorder [Unknown]
  - Procedural pain [Unknown]
  - Fatigue [Unknown]
